FAERS Safety Report 6369872-8 (Version None)
Quarter: 2009Q3

REPORT INFORMATION
  Report Type: 
  Country: None (occurrence: None)
  Receive Date: 20090923
  Receipt Date: 20070420
  Transmission Date: 20100115
  Serious: Yes (Other)
  Sender: FDA-Public Use
  Company Number: US-ASTRAZENECA-2006UW11541

PATIENT
  Age: 32 Year
  Sex: Male
  Weight: 108.4 kg

DRUGS (19)
  1. SEROQUEL [Suspect]
     Indication: MENTAL DISORDER
     Dosage: 25 MG Q HS FOR FOUR DAYS AND THEN 50 MG AND GO UPTO 100 MG BY NEXT WEEK
     Route: 048
     Dates: start: 20051107
  2. SEROQUEL [Suspect]
     Indication: BIPOLAR DISORDER
     Dosage: 25 MG Q HS FOR FOUR DAYS AND THEN 50 MG AND GO UPTO 100 MG BY NEXT WEEK
     Route: 048
     Dates: start: 20051107
  3. SEROQUEL [Suspect]
     Route: 048
     Dates: end: 20061001
  4. SEROQUEL [Suspect]
     Route: 048
     Dates: end: 20061001
  5. HALDOL [Concomitant]
     Route: 065
  6. RISPERDAL [Concomitant]
     Route: 065
  7. PREVACID [Concomitant]
     Route: 065
  8. UROXATRAL [Concomitant]
     Route: 065
  9. FLEXERIL [Concomitant]
     Route: 065
  10. LUVOX [Concomitant]
     Route: 065
     Dates: end: 20051107
  11. METHADONE HCL [Concomitant]
     Route: 065
  12. NEURONTIN [Concomitant]
     Route: 065
  13. NORVASC [Concomitant]
     Route: 065
  14. URECHOLINE [Concomitant]
     Route: 065
  15. NEXIUM [Concomitant]
     Route: 065
  16. PAXIL [Concomitant]
     Route: 065
  17. CYMBALTA [Concomitant]
     Route: 065
     Dates: start: 20050829
  18. LISINOPRIL [Concomitant]
     Route: 065
  19. WELLBUTRIN [Concomitant]
     Route: 065

REACTIONS (1)
  - PANCREATITIS [None]
